FAERS Safety Report 24004691 (Version 1)
Quarter: 2024Q2

REPORT INFORMATION
  Report Type: Spontaneous
  Country: US (occurrence: US)
  Receive Date: 20240624
  Receipt Date: 20240624
  Transmission Date: 20240715
  Serious: Yes (Hospitalization, Other)
  Sender: FDA-Public Use
  Company Number: US-BRISTOL-MYERS SQUIBB COMPANY-2024-098189

PATIENT
  Age: 61 Year
  Sex: Male

DRUGS (1)
  1. POMALYST [Suspect]
     Active Substance: POMALIDOMIDE
     Indication: Plasma cell myeloma
     Route: 048
     Dates: start: 20240402, end: 20240506

REACTIONS (6)
  - Erythema [Unknown]
  - Peripheral swelling [Unknown]
  - Pain in extremity [Unknown]
  - Febrile neutropenia [Unknown]
  - Bacteraemia [Unknown]
  - Blood disorder [Unknown]

NARRATIVE: CASE EVENT DATE: 20240502
